FAERS Safety Report 7554690-5 (Version None)
Quarter: 2011Q2

REPORT INFORMATION
  Report Type: 
  Country: None (occurrence: None)
  Receive Date: 20110610
  Receipt Date: 20110602
  Transmission Date: 20111010
  Serious: Yes (Death, Hospitalization)
  Sender: FDA-Public Use
  Company Number: 2010005567

PATIENT
  Age: 76 Year
  Sex: Female

DRUGS (11)
  1. CRESTOR [Concomitant]
  2. LORAZEPAM [Concomitant]
  3. ZOPICLONE (ZOPICLONE) [Concomitant]
  4. COLACE (DOCUSATE SODIUM) [Concomitant]
  5. VENTOLIN [Concomitant]
  6. ERLOTINIB HYDROCHLORIDE [Suspect]
     Indication: LUNG CANCER METASTATIC
     Dosage: 150 MG, UID/QD, ORAL
     Route: 048
     Dates: start: 20101105, end: 20101210
  7. CYTOTEC [Concomitant]
  8. ADVAIR HFA [Concomitant]
  9. SENOKOT [Concomitant]
  10. PANTOPRAZOLE SODIUM [Concomitant]
  11. HYDROMORPHONE (HYDROMORPHONE) [Concomitant]

REACTIONS (4)
  - DISEASE PROGRESSION [None]
  - PAIN [None]
  - NEOPLASM MALIGNANT [None]
  - PLEURAL EFFUSION [None]
